FAERS Safety Report 6639588-9 (Version None)
Quarter: 2010Q1

REPORT INFORMATION
  Report Type: 
  Country: None (occurrence: None)
  Receive Date: 20100318
  Receipt Date: 20100308
  Transmission Date: 20100710
  Serious: Yes (Other)
  Sender: FDA-Public Use
  Company Number: CO-JNJFOC-20100303610

PATIENT
  Age: 53 Year
  Sex: Male

DRUGS (6)
  1. REMICADE [Suspect]
     Indication: SPONDYLOARTHROPATHY
     Route: 042
     Dates: start: 20060626, end: 20091018
  2. METHOTREXATE [Concomitant]
  3. NAPROXEN [Concomitant]
     Route: 048
  4. FOLIC ACID [Concomitant]
  5. SULFASALAZINE [Concomitant]
  6. OMEPRAZOLE [Concomitant]

REACTIONS (1)
  - NEUROBLASTOMA [None]
